FAERS Safety Report 10428132 (Version 1)
Quarter: 2014Q3

REPORT INFORMATION
  Report Type: Spontaneous
  Country: US (occurrence: US)
  Receive Date: 20140903
  Receipt Date: 20140903
  Transmission Date: 20150326
  Serious: Yes (Hospitalization)
  Sender: FDA-Public Use
  Company Number: US-TEVA-505968USA

PATIENT
  Sex: Male
  Weight: 102.15 kg

DRUGS (7)
  1. FENTANYL. [Concomitant]
     Active Substance: FENTANYL
     Indication: GROIN PAIN
  2. ACTIQ [Suspect]
     Active Substance: FENTANYL CITRATE
     Indication: BONE PAIN
  3. ACTIQ [Suspect]
     Active Substance: FENTANYL CITRATE
     Indication: APLASTIC ANAEMIA
     Dates: start: 201202, end: 201402
  4. FENTANYL. [Concomitant]
     Active Substance: FENTANYL
     Indication: ARTHRALGIA
  5. TPN [Concomitant]
     Active Substance: AMINO ACIDS\DEXTROSE\ELECTROLYTES NOS\SOYBEAN OIL
     Indication: NUTRITIONAL SUPPLEMENTATION
  6. ACTIQ [Suspect]
     Active Substance: FENTANYL CITRATE
     Indication: BONE MARROW FAILURE
  7. FENTANYL. [Concomitant]
     Active Substance: FENTANYL
     Indication: BONE PAIN

REACTIONS (5)
  - Mobility decreased [Recovered/Resolved]
  - Muscle disorder [Recovered/Resolved]
  - Muscular weakness [Recovered/Resolved]
  - Off label use [Unknown]
  - Aplastic anaemia [Unknown]

NARRATIVE: CASE EVENT DATE: 2014
